FAERS Safety Report 6845645-4 (Version None)
Quarter: 2010Q3

REPORT INFORMATION
  Report Type: 
  Country: None (occurrence: None)
  Receive Date: 20100715
  Receipt Date: 20071108
  Transmission Date: 20110219
  Serious: Yes (Other)
  Sender: FDA-Public Use
  Company Number: PFIZER INC-2007063158

PATIENT
  Sex: Female
  Weight: 40.909 kg

DRUGS (3)
  1. CHANTIX [Suspect]
     Indication: SMOKING CESSATION THERAPY
     Dates: start: 20070401
  2. ATENOLOL [Concomitant]
     Indication: HYPERTENSION
  3. OMEPRAZOLE [Concomitant]

REACTIONS (5)
  - CEREBROVASCULAR ACCIDENT [None]
  - MALAISE [None]
  - MEDICATION ERROR [None]
  - NAUSEA [None]
  - VOMITING [None]
